FAERS Safety Report 5400613-4 (Version None)
Quarter: 2007Q3

REPORT INFORMATION
  Report Type: 
  Country: None (occurrence: None)
  Receive Date: 20070730
  Receipt Date: 20070308
  Transmission Date: 20080115
  Serious: No
  Sender: FDA-Public Use
  Company Number: A0640965A

PATIENT
  Sex: Female

DRUGS (1)
  1. ZANTAC 150 [Suspect]
     Route: 048

REACTIONS (5)
  - ASTHENIA [None]
  - FATIGUE [None]
  - HELICOBACTER INFECTION [None]
  - THERAPEUTIC RESPONSE UNEXPECTED [None]
  - VISION BLURRED [None]
